FAERS Safety Report 8885010 (Version 2)
Quarter: 2012Q4

REPORT INFORMATION
  Report Type: Report from Study
  Country: NL (occurrence: NL)
  Receive Date: 20121105
  Receipt Date: 20121130
  Transmission Date: 20130627
  Serious: Yes (Hospitalization)
  Sender: FDA-Public Use
  Company Number: NL-BIOGENIDEC-2012BI049340

PATIENT
  Age: 55 Year
  Sex: Female

DRUGS (6)
  1. TYSABRI [Suspect]
     Indication: RELAPSING-REMITTING MULTIPLE SCLEROSIS
     Route: 042
     Dates: start: 20081229
  2. BACLOFEN [Concomitant]
  3. LEVOTHYROXINE [Concomitant]
  4. FENTANYL [Concomitant]
  5. MELOXICAM [Concomitant]
  6. OXAZEPAM [Concomitant]

REACTIONS (1)
  - Social problem [Unknown]
